FAERS Safety Report 20812770 (Version 3)
Quarter: 2023Q2

REPORT INFORMATION
  Report Type: Spontaneous
  Country: US (occurrence: US)
  Receive Date: 20220511
  Receipt Date: 20230425
  Transmission Date: 20230721
  Serious: No
  Sender: FDA-Public Use
  Company Number: US-BIOGEN-2022BI01122169

PATIENT
  Age: 69 Year
  Sex: Female

DRUGS (1)
  1. TECFIDERA [Suspect]
     Active Substance: DIMETHYL FUMARATE
     Indication: Product used for unknown indication
     Route: 050
     Dates: start: 201806

REACTIONS (9)
  - Gait disturbance [Unknown]
  - Mobility decreased [Unknown]
  - Muscular weakness [Unknown]
  - Bladder neoplasm [Unknown]
  - Urinary tract infection [Unknown]
  - Fungal infection [Unknown]
  - Dyspnoea exertional [Unknown]
  - Diplopia [Unknown]
  - Fall [Recovered/Resolved]

NARRATIVE: CASE EVENT DATE: 20220509
